FAERS Safety Report 21171494 (Version 1)
Quarter: 2022Q3

REPORT INFORMATION
  Report Type: Spontaneous
  Country: CH (occurrence: CH)
  Receive Date: 20220804
  Receipt Date: 20220804
  Transmission Date: 20221027
  Serious: Yes (Other)
  Sender: FDA-Public Use
  Company Number: None

PATIENT
  Age: 75 Year
  Sex: Female

DRUGS (7)
  1. ALDACTONE [Suspect]
     Active Substance: SPIRONOLACTONE
     Dosage: 50 MG, 1X/DAY (1-0-0-0; PROBABLY UNTIL FURTHER NOTICE)
     Route: 048
     Dates: start: 20200917
  2. XARELTO [Suspect]
     Active Substance: RIVAROXABAN
     Dosage: 20 MG, 1X/DAY (1-0-0-0; PROBABLY UNTIL FURTHER NOTICE)
     Route: 048
     Dates: start: 20201016
  3. TORSEMIDE [Suspect]
     Active Substance: TORSEMIDE
     Dosage: 2.5 MG, DAILY (STRENGTH: 5 MG; 1/2-0-0-0; PROBABLY UNTIL FURTHER NOTICE)
     Route: 048
     Dates: start: 20200917
  4. CALCIUM\CHOLECALCIFEROL [Concomitant]
     Active Substance: CALCIUM\CHOLECALCIFEROL
     Dosage: 1 DF, DAILY (500/8000 1-0-0-0)
     Route: 048
  5. ATENOLOL [Concomitant]
     Active Substance: ATENOLOL
     Dosage: 50 MG, 1X/DAY (0-0-1-0)
     Route: 048
  6. HYDROXYUREA [Concomitant]
     Active Substance: HYDROXYUREA
     Dosage: 500 MG, 1-2X/DAY
     Route: 048
     Dates: start: 20201020
  7. RUXOLITINIB [Concomitant]
     Active Substance: RUXOLITINIB
     Dosage: 10 MG, 2X/DAY (1-01-0; FILED HISTORY STARTED AFTER 07DEC2020)
     Route: 048

REACTIONS (7)
  - Myeloproliferative neoplasm [Recovering/Resolving]
  - Polycythaemia vera [Recovering/Resolving]
  - Budd-Chiari syndrome [Unknown]
  - Pruritus [Not Recovered/Not Resolved]
  - Factor V Leiden mutation [Unknown]
  - Coagulation factor VIII level increased [Unknown]
  - Protein C deficiency [Unknown]

NARRATIVE: CASE EVENT DATE: 20200901
